FAERS Safety Report 8552014-8 (Version None)
Quarter: 2012Q3

REPORT INFORMATION
  Report Type: 
  Country: None (occurrence: None)
  Receive Date: 20120730
  Receipt Date: 20070706
  Transmission Date: 20120928
  Serious: Yes (Hospitalization, Other)
  Sender: FDA-Public Use
  Company Number: PHMT2006CA00909

PATIENT
  Sex: Female

DRUGS (10)
  1. CREON [Concomitant]
     Dosage: 20 MG 3-4 PILLS A MEAL
  2. OMEPRAZOLE (PRISOLEC) [Concomitant]
  3. NEXIUM [Concomitant]
     Dosage: 40 MG, QD
  4. PAXIL [Concomitant]
     Dosage: 30 MG, QD
  5. SANDOSTATIN LAR [Suspect]
     Dosage: 20 MG ONCE A MONTH
  6. ATIVAN [Concomitant]
  7. DOMPERIDONE [Concomitant]
     Dosage: 20 MG AC MEALS
  8. OXAZEPAM [Concomitant]
     Dosage: 15 MG, 1-2/NIGHT
  9. SANDOSTATIN LAR [Suspect]
     Indication: PANCREATITIS CHRONIC
     Dosage: 30 MG, EVERY THREE WEEKS
     Route: 030
     Dates: start: 19990101, end: 20070705
  10. SANDOSTATIN LAR [Suspect]
     Dosage: 10 MG ONCE A MONTH

REACTIONS (29)
  - PANCREATITIS [None]
  - PANCREATIC MASS [None]
  - PAIN [None]
  - BLOOD BILIRUBIN INCREASED [None]
  - MALAISE [None]
  - DECREASED APPETITE [None]
  - URINARY INCONTINENCE [None]
  - FLUID INTAKE REDUCED [None]
  - SEPSIS [None]
  - PANCREATOLITHIASIS [None]
  - VOMITING [None]
  - CHOLECYSTITIS [None]
  - ABDOMINAL PAIN [None]
  - ABDOMINAL DISTENSION [None]
  - SYNCOPE [None]
  - HEART RATE INCREASED [None]
  - BILE DUCT STONE [None]
  - NAUSEA [None]
  - ASTHENIA [None]
  - INTESTINAL MASS [None]
  - WEIGHT DECREASED [None]
  - FALL [None]
  - CACHEXIA [None]
  - INFECTION [None]
  - HYPOTENSION [None]
  - URINARY TRACT INFECTION [None]
  - CONTUSION [None]
  - OEDEMA PERIPHERAL [None]
  - BLOOD GLUCOSE INCREASED [None]
